FAERS Safety Report 4516423-6 (Version None)
Quarter: 2004Q4

REPORT INFORMATION
  Report Type: 
  Country: None (occurrence: None)
  Receive Date: 20041202
  Receipt Date: 20040520
  Transmission Date: 20050328
  Serious: No
  Sender: FDA-Public Use
  Company Number: US-GLAXOSMITHKLINE-A0511634A

PATIENT
  Sex: Female

DRUGS (1)
  1. AUGMENTIN '125' [Suspect]
     Indication: ACUTE SINUSITIS
     Dosage: 1000MG FOUR TIMES PER DAY
     Route: 048
     Dates: start: 20040518, end: 20040520

REACTIONS (3)
  - DIARRHOEA [None]
  - STOOLS WATERY [None]
  - URTICARIA [None]
